FAERS Safety Report 4368063-X (Version None)
Quarter: 2004Q2

REPORT INFORMATION
  Report Type: 
  Country: None (occurrence: None)
  Receive Date: 20040527
  Receipt Date: 20040323
  Transmission Date: 20050107
  Serious: No
  Sender: FDA-Public Use
  Company Number: 205456

PATIENT
  Sex: Female

DRUGS (3)
  1. RAPTIVA [Suspect]
     Indication: PSORIASIS
     Dosage: 1/WEEK,SUBCUTANEOUS
     Route: 058
  2. METHOTREXATE [Concomitant]
  3. PHOTOTHERAPY [Concomitant]

REACTIONS (2)
  - OEDEMA PERIPHERAL [None]
  - PSORIASIS [None]
